FAERS Safety Report 7517145-X (Version None)
Quarter: 2011Q2

REPORT INFORMATION
  Report Type: 
  Country: None (occurrence: None)
  Receive Date: 20110601
  Receipt Date: 20110525
  Transmission Date: 20111010
  Serious: Yes (Other)
  Sender: FDA-Public Use
  Company Number: BR-PFIZER INC-2011112776

PATIENT
  Age: 79 Year
  Sex: Female
  Weight: 45 kg

DRUGS (9)
  1. DEFLANYL [Concomitant]
     Indication: THROMBOSIS
     Dosage: UNK
     Dates: start: 19950101
  2. REVATIO [Suspect]
     Indication: PULMONARY EMBOLISM
  3. ATENOLOL [Concomitant]
     Indication: ARRHYTHMIA
     Dosage: UNK
  4. MEMANTINE HYDROCHLORIDE [Concomitant]
     Indication: DEMENTIA ALZHEIMER'S TYPE
     Dosage: UNK
     Dates: start: 20100101
  5. REVATIO [Suspect]
     Indication: SYSTEMIC SCLEROSIS
     Dosage: 20 MG, 3X/DAY
     Route: 048
     Dates: start: 20110525
  6. AMLODIPINE [Concomitant]
     Indication: CARDIOVASCULAR DISORDER
     Dosage: UNK
     Dates: start: 20080101
  7. OMEPRAZOLE [Concomitant]
     Indication: ABDOMINAL DISCOMFORT
     Dosage: UNK
     Dates: start: 20090101
  8. AAS INFANTIL [Concomitant]
     Indication: CARDIOVASCULAR DISORDER
     Dosage: UNK
  9. FLUOXETINE [Concomitant]
     Indication: DEPRESSION
     Dosage: UNK
     Dates: start: 20090101

REACTIONS (2)
  - VISION BLURRED [None]
  - VISUAL ACUITY REDUCED [None]
